FAERS Safety Report 19274273 (Version 2)
Quarter: 2021Q2

REPORT INFORMATION
  Report Type: Spontaneous
  Country: NL (occurrence: NL)
  Receive Date: 20210519
  Receipt Date: 20210531
  Transmission Date: 20210717
  Serious: Yes (Hospitalization, Other)
  Sender: FDA-Public Use
  Company Number: NL-TEVA-2021-NL-1911691

PATIENT
  Age: 74 Year
  Sex: Male
  Weight: 110 kg

DRUGS (9)
  1. ISOSORBIDEMONONITRAAT CAPSULE MGA  50MG / BRAND NAME NOT SPECIFIED [Concomitant]
     Dosage: 50 MG (MILLIGRAM) ,THERAPY START DATE AND END DATE : ASKU
  2. ROSUVASTATINE TABLET 20MG / BRAND NAME NOT SPECIFIED [Concomitant]
     Dosage: 20 MG (MILLIGRAM) , THERAPY START DATE AND END DATE : ASKU
  3. EDOXABAN TABLET 60MG / BRAND NAME NOT SPECIFIED [Concomitant]
     Dosage: 60 MG , THERAPY START DATE AND END DATE : ASKU
  4. DOXAZOSINE TABLET MGA 4MG / BRAND NAME NOT SPECIFIED [Suspect]
     Active Substance: DOXAZOSIN MESYLATE
     Indication: HYPERTENSION
     Dosage: 2D1
     Dates: start: 201506, end: 20210406
  5. PARACETAMOL TABLET  500MG / BRAND NAME NOT SPECIFIED [Concomitant]
     Dosage: 500MG 4DD2 , THERAPY START DATE AND END DATE : ASKU
  6. SPIRONOLACTON TABLET 12,5MG / BRAND NAME NOT SPECIFIED [Concomitant]
     Active Substance: SPIRONOLACTONE
     Dosage: 25 MILLIGRAM DAILY; THERAPY START DATE AND END DATE : ASKU
  7. AMIODARON TABLET 200MG / BRAND NAME NOT SPECIFIED [Concomitant]
     Dosage: 200MG 1 TIME PER DAY 0.5 TABLET ,THERAPY START DATE AND END DATE : ASKU
  8. PANTOPRAZOL TABLET MSR 40MG / BRAND NAME NOT SPECIFIED [Concomitant]
     Active Substance: PANTOPRAZOLE
     Dosage: 40 MG (MILLIGRAM) , THERAPY START DATE AND END DATE : ASKU
  9. IRBESARTAN TABLET  75MG / BRAND NAME NOT SPECIFIED [Concomitant]
     Dosage: 150 MILLIGRAM DAILY; THERAPY START DATE AND END DATE : ASKU

REACTIONS (7)
  - Hypotension [Unknown]
  - Pyrexia [Recovering/Resolving]
  - Vomiting [Unknown]
  - Acute coronary syndrome [Recovering/Resolving]
  - Chills [Recovered/Resolved]
  - Thrombocytopenia [Unknown]
  - Pneumonia [Recovering/Resolving]

NARRATIVE: CASE EVENT DATE: 20210406
